FAERS Safety Report 16707868 (Version 1)
Quarter: 2019Q3

REPORT INFORMATION
  Report Type: Spontaneous
  Country: FR (occurrence: FR)
  Receive Date: 20190815
  Receipt Date: 20190815
  Transmission Date: 20191004
  Serious: Yes (Other)
  Sender: FDA-Public Use
  Company Number: FR-ELI_LILLY_AND_COMPANY-FR201908006036

PATIENT
  Age: 74 Year
  Sex: Female
  Weight: 133.9 kg

DRUGS (6)
  1. METFORMINE [METFORMIN HYDROCHLORIDE] [Interacting]
     Active Substance: METFORMIN HYDROCHLORIDE
     Indication: DIABETES MELLITUS
     Route: 048
  2. OFLOXACINE [Interacting]
     Active Substance: OFLOXACIN
     Indication: OSTEITIS
     Route: 048
     Dates: start: 20190709, end: 20190723
  3. AMOXICILLINE [AMOXICILLIN] [Concomitant]
     Active Substance: AMOXICILLIN
     Indication: OSTEITIS
     Route: 048
     Dates: start: 20190709, end: 20190723
  4. VICTOZA [Interacting]
     Active Substance: LIRAGLUTIDE
     Indication: DIABETES MELLITUS
     Route: 058
     Dates: start: 20190624
  5. HUMALOG [Interacting]
     Active Substance: INSULIN LISPRO
     Indication: DIABETES MELLITUS
     Dosage: 78 INTERNATIONAL UNIT, DAILY
     Route: 058
  6. ABASAGLAR [Suspect]
     Active Substance: INSULIN GLARGINE
     Indication: DIABETES MELLITUS
     Dosage: UNK UNK, UNKNOWN
     Route: 058
     Dates: start: 20190624

REACTIONS (2)
  - Hypoglycaemia [Recovered/Resolved]
  - Drug interaction [Recovered/Resolved]

NARRATIVE: CASE EVENT DATE: 20190711
